FAERS Safety Report 8153166 (Version 3)
Quarter: 2014Q1

REPORT INFORMATION
  Report Type: Spontaneous
  Country: FR (occurrence: FR)
  Receive Date: 20110923
  Receipt Date: 20140213
  Transmission Date: 20141002
  Serious: Yes (Hospitalization)
  Sender: FDA-Public Use
  Company Number: FR-BRISTOL-MYERS SQUIBB COMPANY-16076416

PATIENT
  Age: 81 Year
  Sex: Female

DRUGS (18)
  1. ONGLYZA TABS 5 MG [Suspect]
     Dosage: FOR 48 DAYS
     Route: 048
     Dates: start: 20110706, end: 20110822
  2. DAFALGAN CODEINE TABS [Suspect]
     Dosage: 169 DAYS,DAFALGAN CODEINE TABS  COATED TABS 2DF 2 IN 1 D
     Route: 048
     Dates: start: 20110316, end: 20110822
  3. GLUCOPHAGE TABS 1000 MG [Suspect]
     Dosage: FOR A LONG TIME
     Route: 048
     Dates: end: 20110822
  4. LOPERAMIDE HCL [Suspect]
     Dosage: FOR 48 DAYS
     Route: 048
     Dates: start: 20110706, end: 20110822
  5. MONOPLUS TABS 20 MG/12.5 MG [Suspect]
     Dosage: PRODUCT STRENGTH IS 20MG/12.5 MG
     Route: 048
     Dates: end: 20110822
  6. FUROSEMIDE [Suspect]
     Dosage: TABS
     Route: 048
     Dates: end: 20110822
  7. CRESTOR [Suspect]
     Dosage: FOR A LONG TIME,CRESTOR  COATED TABS5MG
     Route: 048
     Dates: end: 20110822
  8. DIGOXINE NATIVELLE [Suspect]
     Dosage: 6 OUT OF 7 DYS FOR A LONG TIME,DIGOXINE NATIVELLE 0.25 MG TABS
     Route: 048
     Dates: end: 20110822
  9. PREVISCAN [Suspect]
     Dosage: PRODUCT STRENGTH IS 20MG?1DF IS 0.75 UNITS NOT SPECIFIED
     Route: 048
     Dates: end: 20110822
  10. PIASCLEDINE [Suspect]
     Dosage: CAPS
     Route: 048
     Dates: end: 20110822
  11. FLECTOR [Suspect]
     Dosage: FLECTOR 1% GEL
     Route: 003
     Dates: start: 20110608, end: 20110822
  12. DOMPERIDONE [Suspect]
     Dosage: 3 TO 6 TIMES IN A DY
     Route: 048
     Dates: start: 20110706, end: 20110822
  13. LANSOPRAZOLE [Suspect]
     Dosage: LANSOPRAZOLE  15 GASTRO RESISTANT CAPS
     Route: 048
     Dates: start: 20110706, end: 20110822
  14. ZOLPIDEM [Suspect]
     Route: 048
     Dates: start: 20110706, end: 20110822
  15. SMECTA [Suspect]
     Route: 048
     Dates: start: 20110816, end: 20110822
  16. PHLOROGLUCINOL [Suspect]
     Dosage: FOR 7 DAYS
     Route: 048
     Dates: start: 20110816, end: 20110822
  17. METOPROLOL [Concomitant]
     Dosage: TAB
  18. LEVOTHYROX [Concomitant]
     Dosage: TABS

REACTIONS (6)
  - Renal failure [Recovered/Resolved]
  - Hyperkalaemia [Recovered/Resolved]
  - Dehydration [Recovered/Resolved]
  - Metabolic acidosis [Recovered/Resolved]
  - General physical condition abnormal [Recovered/Resolved]
  - Diarrhoea [Recovered/Resolved]
